FAERS Safety Report 22254100 (Version 1)
Quarter: 2023Q2

REPORT INFORMATION
  Report Type: Spontaneous
  Country: US (occurrence: None)
  Receive Date: 20230425
  Receipt Date: 20230425
  Transmission Date: 20230722
  Serious: Yes (Other)
  Sender: FDA-Public Use
  Company Number: None

PATIENT
  Age: 47 Year
  Sex: Male
  Weight: 96.75 kg

DRUGS (3)
  1. DEPO-TESTOSTERONE [Suspect]
     Active Substance: TESTOSTERONE CYPIONATE
     Indication: Blood testosterone decreased
     Dosage: OTHER QUANTITY : 1 INJECTION(S);?OTHER FREQUENCY : EVERY 5 DAYS;?
     Route: 030
     Dates: start: 20230317, end: 20230417
  2. TRAMADOL [Concomitant]
     Active Substance: TRAMADOL
  3. CLONAZEPAM [Concomitant]
     Active Substance: CLONAZEPAM

REACTIONS (6)
  - Product substitution issue [None]
  - Product contamination [None]
  - Migraine [None]
  - Pyrexia [None]
  - Pain [None]
  - Influenza like illness [None]

NARRATIVE: CASE EVENT DATE: 20230317
